FAERS Safety Report 8487051-5 (Version None)
Quarter: 2012Q3

REPORT INFORMATION
  Report Type: 
  Country: None (occurrence: None)
  Receive Date: 20120704
  Receipt Date: 20120628
  Transmission Date: 20120928
  Serious: Yes (Other)
  Sender: FDA-Public Use
  Company Number: PHHY2012CA049350

PATIENT
  Sex: Female

DRUGS (1)
  1. GILENYA [Suspect]
     Indication: RELAPSING-REMITTING MULTIPLE SCLEROSIS
     Dosage: 0.5 MG, QD
     Route: 048
     Dates: start: 20120606

REACTIONS (6)
  - STRESS [None]
  - ABDOMINAL DISCOMFORT [None]
  - BRADYCARDIA [None]
  - DIZZINESS [None]
  - PALLOR [None]
  - BLOOD PRESSURE DECREASED [None]
